FAERS Safety Report 7659247-3 (Version None)
Quarter: 2011Q3

REPORT INFORMATION
  Report Type: 
  Country: None (occurrence: None)
  Receive Date: 20110805
  Receipt Date: 20110726
  Transmission Date: 20111222
  Serious: Yes (Hospitalization)
  Sender: FDA-Public Use
  Company Number: FR-ROCHE-771357

PATIENT
  Sex: Male
  Weight: 96 kg

DRUGS (7)
  1. MYCOPHENOLATE MOFETIL [Suspect]
     Dosage: LOWERED DOSAGE.
     Route: 048
     Dates: start: 20101218
  2. PREDNISONE [Suspect]
     Route: 048
     Dates: start: 20101218
  3. MYCOPHENOLATE MOFETIL [Suspect]
     Route: 048
  4. MYCOPHENOLATE MOFETIL [Suspect]
     Dosage: LOWERED DOSAGE.
     Route: 048
  5. CYCLOSPORINE [Suspect]
     Dosage: LOWERED DOSAGE.
     Route: 048
     Dates: start: 20101218
  6. CYCLOSPORINE [Suspect]
     Route: 048
  7. LASIX [Concomitant]

REACTIONS (4)
  - ANAEMIA [None]
  - NEURALGIA [None]
  - GAIT DISTURBANCE [None]
  - ASTHENIA [None]
